FAERS Safety Report 12867890 (Version 3)
Quarter: 2018Q1

REPORT INFORMATION
  Report Type: Spontaneous
  Country: US (occurrence: US)
  Receive Date: 20161020
  Receipt Date: 20180123
  Transmission Date: 20180508
  Serious: No
  Sender: FDA-Public Use
  Company Number: US-AMGEN-USASP2016101574

PATIENT
  Age: 53 Year
  Sex: Female

DRUGS (1)
  1. REPATHA [Suspect]
     Active Substance: EVOLOCUMAB
     Indication: BLOOD CHOLESTEROL INCREASED
     Dosage: 140 MG, Q2WK
     Route: 065
     Dates: start: 201607

REACTIONS (5)
  - Inappropriate schedule of drug administration [Unknown]
  - Feeling abnormal [Unknown]
  - Injection site extravasation [Unknown]
  - Anxiety [Unknown]
  - Skin swelling [Recovered/Resolved]

NARRATIVE: CASE EVENT DATE: 20160804
